FAERS Safety Report 10034607 (Version 2)
Quarter: 2014Q2

REPORT INFORMATION
  Report Type: Spontaneous
  Country: US (occurrence: US)
  Receive Date: 20140325
  Receipt Date: 20140407
  Transmission Date: 20141212
  Serious: No
  Sender: FDA-Public Use
  Company Number: US-009507513-1403USA004454

PATIENT
  Age: 62 Year
  Sex: Female
  Weight: 50.79 kg

DRUGS (1)
  1. OXYTROL FOR WOMEN [Suspect]
     Indication: POLLAKIURIA
     Dosage: UNK, BIM
     Route: 062
     Dates: start: 20140220, end: 20140224

REACTIONS (2)
  - Application site swelling [Unknown]
  - Application site erythema [Recovered/Resolved]
